FAERS Safety Report 22114022 (Version 1)
Quarter: 2023Q1

REPORT INFORMATION
  Report Type: Spontaneous
  Country: GB (occurrence: GB)
  Receive Date: 20230320
  Receipt Date: 20230320
  Transmission Date: 20230418
  Serious: Yes (Other)
  Sender: FDA-Public Use
  Company Number: None

PATIENT
  Age: 16 Year
  Sex: Female
  Weight: 64 kg

DRUGS (8)
  1. AMOXICILLIN [Suspect]
     Active Substance: AMOXICILLIN
     Indication: Product used for unknown indication
     Dates: start: 20230306
  2. CLARITHROMYCIN [Concomitant]
     Active Substance: CLARITHROMYCIN
     Indication: Product used for unknown indication
     Dates: start: 20230307
  3. DEPO-PROVERA [Concomitant]
     Active Substance: MEDROXYPROGESTERONE ACETATE
     Indication: Product used for unknown indication
     Dosage: USE AS DIRECTED
     Dates: start: 20221212
  4. FOLIC ACID [Concomitant]
     Active Substance: FOLIC ACID
     Indication: Product used for unknown indication
     Dosage: OMIT ON DAY OF METHOTREXATE
     Dates: start: 20200205
  5. LANSOPRAZOLE [Concomitant]
     Active Substance: LANSOPRAZOLE
     Indication: Product used for unknown indication
     Dates: start: 20211224
  6. METHOTREXATE [Concomitant]
     Active Substance: METHOTREXATE
     Indication: Product used for unknown indication
     Dosage: 15MG (SIX TABLETS)
     Dates: start: 20220725
  7. NAPROXEN [Concomitant]
     Active Substance: NAPROXEN
     Indication: Product used for unknown indication
     Dosage: ONE IN MORNING AND AT BEDTIME - WITH FOOD
     Dates: start: 20220121
  8. TRIREGOL [Concomitant]
     Indication: Product used for unknown indication
     Dosage: AS DIRECTED
     Dates: start: 20220815

REACTIONS (2)
  - Abdominal pain [Recovered/Resolved]
  - Rash [Recovered/Resolved]
